FAERS Safety Report 20965955 (Version 1)
Quarter: 2022Q2

REPORT INFORMATION
  Report Type: Report from Study
  Country: IT (occurrence: IT)
  Receive Date: 20220616
  Receipt Date: 20220616
  Transmission Date: 20220721
  Serious: Yes (Other)
  Sender: FDA-Public Use
  Company Number: IT-ROCHE-2109962

PATIENT
  Sex: Female
  Weight: 60 kg

DRUGS (19)
  1. TAMOXIFEN [Suspect]
     Active Substance: TAMOXIFEN
     Indication: Breast cancer metastatic
     Dosage: UNIT DOSE : 20 MG, FREQUENCY TIME : 1 DAYS
     Route: 048
     Dates: start: 20180913
  2. LETROZOLE [Suspect]
     Active Substance: LETROZOLE
     Indication: Breast cancer metastatic
     Dosage: UNIT DOSE : 2.5 MG,FREQUENCY TIME : 1 DAYS,  THERAPY DURATION : 20  DAYS
     Route: 048
     Dates: start: 20180801, end: 20180820
  3. DOCETAXEL [Suspect]
     Active Substance: DOCETAXEL
     Indication: Breast cancer metastatic
     Dosage: UNIT DOSE : 80 MG/M2, THERAPY DURATION : 97  DAYS
     Route: 042
     Dates: start: 20171116, end: 20180220
  4. EXEMESTANE [Suspect]
     Active Substance: EXEMESTANE
     Indication: Breast cancer metastatic
     Dosage: UNIT DOSE :  25 MG , FREQUENCY TIME : 1 DAYS, THERAPY DURATION : 24  DAYS
     Route: 048
     Dates: start: 20180820, end: 20180912
  5. TRASTUZUMAB [Suspect]
     Active Substance: TRASTUZUMAB
     Indication: Breast cancer metastatic
     Dosage: UNIT DOSE : 6 MG/KG, FREQUENCY TIME : 3  WEEKS
     Route: 042
     Dates: start: 20171116
  6. LEUPROLIDE ACETATE [Suspect]
     Active Substance: LEUPROLIDE ACETATE
     Indication: Breast cancer metastatic
     Dosage: UNIT DOSE : 3.75 MG, FREQUENCY TIME : 1 DAYS,THERAPY DURATION : 43  DAYS
     Route: 058
     Dates: start: 20180801, end: 20180912
  7. PERTUZUMAB [Suspect]
     Active Substance: PERTUZUMAB
     Indication: Breast cancer metastatic
     Dosage: UNIT DOSE : 420 MG, FREQUENCY TIME : 3  WEEKS
     Route: 042
     Dates: start: 20171116
  8. DEXAMETHASONE [Concomitant]
     Active Substance: DEXAMETHASONE
     Dosage: ONGOING = NOT CHECKED, UNIT DOSE : 8 MG,  THERAPY DURATION : 11 DAYS
     Route: 042
     Dates: start: 20180202, end: 20180212
  9. DEXAMETHASONE [Concomitant]
     Active Substance: DEXAMETHASONE
     Dosage: ONGOING = NOT CHECKED,UNIT DOSE : 4  MG,  THERAPY DURATION : 1 DAYS, FREQUENCY TIME : 1 DAYS
     Route: 042
     Dates: start: 20180313, end: 20180313
  10. DEXAMETHASONE [Concomitant]
     Active Substance: DEXAMETHASONE
     Dosage: (AS NEEDED, UNIT DOSE : 20   MG,  THERAPY DURATION : 64 DAYS, FREQUENCY TIME : AS REQUIRED
     Route: 042
     Dates: start: 20171123, end: 20180125
  11. KETOROLAC [Concomitant]
     Active Substance: KETOROLAC TROMETHAMINE
     Indication: Abdominal pain
     Dosage: FREQUENCY TIME : 1 DAYS, THERAPY DURATION : 1 DAYS
     Route: 030
     Dates: start: 20200820, end: 20200820
  12. RANITIDINE [Concomitant]
     Active Substance: RANITIDINE
     Dosage: UNIT DOSE : 50 MG, FREQUENCY TIME : AS REQUIRED, THERAPY DURATION : 82 DAYS
     Route: 042
     Dates: start: 20171123, end: 20180212
  13. ZOLEDRONIC ACID [Concomitant]
     Active Substance: ZOLEDRONIC ACID
     Dosage: UNIT DOSE :   4 MG, FREQUENCY TIME : 21 DAYS, THERAPY DURATION : 719  DAYS
     Route: 042
     Dates: start: 20180419, end: 20200406
  14. ONDANSETRON [Concomitant]
     Active Substance: ONDANSETRON
     Dosage: FREQUENCY TIME : AS REQUIRED, UNIT DOSE :  8 MG, THERAPY DURATION : 82  DAYS
     Route: 042
     Dates: start: 20171123, end: 20180212
  15. BISOPROLOL FUMARATE [Concomitant]
     Active Substance: BISOPROLOL FUMARATE
     Indication: Tachycardia
     Dosage: UNIT DOSE : 10 MG, FREQUENCY TIME : 1 DAYS
     Route: 048
     Dates: start: 20181105
  16. METHYLPREDNISOLONE [Concomitant]
     Active Substance: METHYLPREDNISOLONE
     Indication: Lip oedema
     Dosage: UNIT DOSE : 4 MG, FREQUENCY TIME : 1 DAYS,  THERAPY DURATION : 4  DAYS
     Route: 048
     Dates: start: 20200413, end: 20200416
  17. METHYLPREDNISOLONE [Concomitant]
     Active Substance: METHYLPREDNISOLONE
     Indication: Musculoskeletal pain
     Dosage: UNIT DOSE : 16  MG, FREQUENCY TIME : 1 DAYS
     Route: 048
     Dates: start: 20180313
  18. AMOXICILLIN\CLAVULANIC ACID [Concomitant]
     Active Substance: AMOXICILLIN\CLAVULANIC ACID
     Indication: Paronychia
     Dosage: UNIT DOSE : 1 DOSAGE FORMS, FREQUENCY TIME : 0.5  DAYS, THERAPY DURATION : 6 DAYS
     Route: 048
     Dates: start: 20191007, end: 20191012
  19. CHLORPHENIRAMINE [Concomitant]
     Active Substance: CHLORPHENIRAMINE
     Dosage: UNIT DOSE : 10  MG, THERAPY DURATION : 82 DAYS
     Route: 042
     Dates: start: 20171123, end: 20180212

REACTIONS (6)
  - Neurotoxicity [Recovered/Resolved]
  - Headache [Recovered/Resolved]
  - Headache [Recovered/Resolved]
  - Asthenia [Recovered/Resolved]
  - Diarrhoea [Recovered/Resolved]
  - Visual field defect [Recovered/Resolved]

NARRATIVE: CASE EVENT DATE: 20171130
